FAERS Safety Report 8294829-X (Version None)
Quarter: 2012Q2

REPORT INFORMATION
  Report Type: 
  Country: None (occurrence: None)
  Receive Date: 20120418
  Receipt Date: 20120412
  Transmission Date: 20120825
  Serious: No
  Sender: FDA-Public Use
  Company Number: US-B.I. PHARMACEUTICALS,INC./RIDGEFIELD-2012-BP-06995BP

PATIENT
  Sex: Female

DRUGS (6)
  1. ASMANEX TWISTHALER [Concomitant]
  2. ARCAPTA [Concomitant]
  3. ADVAIR DISKUS 100/50 [Suspect]
  4. DULERA ORAL INHALATION [Suspect]
  5. SYMBICORT [Concomitant]
  6. SPIRIVA [Suspect]

REACTIONS (1)
  - DRUG INEFFECTIVE [None]
